FAERS Safety Report 18716070 (Version 2)
Quarter: 2021Q1

REPORT INFORMATION
  Report Type: Report from Study
  Country: None (occurrence: CO)
  Receive Date: 20210108
  Receipt Date: 20210129
  Transmission Date: 20210419
  Serious: Yes (Disabling, Other)
  Sender: FDA-Public Use
  Company Number: CO-ABBVIE-21K-036-3721259-00

PATIENT
  Sex: Male
  Weight: 66 kg

DRUGS (2)
  1. ZEMPLAR [Suspect]
     Active Substance: PARICALCITOL
     Indication: CHRONIC KIDNEY DISEASE
  2. ZEMPLAR [Suspect]
     Active Substance: PARICALCITOL
     Indication: HYPERPARATHYROIDISM SECONDARY
     Dosage: POSTDIALYSIS
     Route: 042
     Dates: start: 20170524

REACTIONS (3)
  - Gait inability [Recovered/Resolved with Sequelae]
  - Leg amputation [Recovered/Resolved with Sequelae]
  - Diabetic foot [Recovered/Resolved with Sequelae]

NARRATIVE: CASE EVENT DATE: 2020
